FAERS Safety Report 19573834 (Version 4)
Quarter: 2021Q3

REPORT INFORMATION
  Report Type: Report from Study
  Country: BR (occurrence: BR)
  Receive Date: 20210718
  Receipt Date: 20210903
  Transmission Date: 20211014
  Serious: No
  Sender: FDA-Public Use
  Company Number: BR-JNJFOC-20210715148

PATIENT
  Age: 58 Year
  Sex: Female

DRUGS (7)
  1. SIMPONI [Suspect]
     Active Substance: GOLIMUMAB
     Route: 058
     Dates: start: 20210505
  2. SELOZOK [Concomitant]
     Active Substance: METOPROLOL SUCCINATE
  3. AAS [Concomitant]
     Active Substance: ASPIRIN
  4. SIMPONI [Suspect]
     Active Substance: GOLIMUMAB
     Indication: PSORIATIC ARTHROPATHY
     Dosage: 50.00 MG / 0.50 ML
     Route: 058
     Dates: start: 20210416
  5. MONOCORDIL [Concomitant]
     Active Substance: ISOSORBIDE MONONITRATE
  6. CARDIZEM [Concomitant]
     Active Substance: DILTIAZEM HYDROCHLORIDE
  7. CLOPIDOGREL [Concomitant]
     Active Substance: CLOPIDOGREL BISULFATE

REACTIONS (5)
  - Device leakage [Unknown]
  - Device issue [Unknown]
  - Product dose omission issue [Unknown]
  - Application site pain [Unknown]
  - Accidental exposure to product [Unknown]

NARRATIVE: CASE EVENT DATE: 20210705
